FAERS Safety Report 15160632 (Version 1)
Quarter: 2018Q3

REPORT INFORMATION
  Report Type: Spontaneous
  Country: GB (occurrence: GB)
  Receive Date: 20180718
  Receipt Date: 20180718
  Transmission Date: 20181010
  Serious: Yes (Hospitalization, Other)
  Sender: FDA-Public Use
  Company Number: GB-ALLERGAN-1835780US

PATIENT
  Age: 60 Year
  Sex: Male

DRUGS (8)
  1. APIXABAN [Concomitant]
     Active Substance: APIXABAN
     Dosage: 5 MG, QD
  2. FOLIC ACID. [Concomitant]
     Active Substance: FOLIC ACID
     Dosage: 5 MG, QD
  3. FOSFOMYCIN TROMETHAMINE UNK [Suspect]
     Active Substance: FOSFOMYCIN TROMETHAMINE
     Indication: URINARY TRACT STOMA COMPLICATION
     Dosage: 12 G, DAILY FOR ONE WEEK (ALSO REPORTED AS 12 G FOR ONE WEEK)
     Route: 048
  4. FERROUS FUMARATE [Concomitant]
     Active Substance: FERROUS FUMARATE
     Dosage: 630 MG, QD
  5. LANSOPRAZOLE. [Concomitant]
     Active Substance: LANSOPRAZOLE
     Dosage: 30 MG, QAM
  6. LOPERAMIDE [Concomitant]
     Active Substance: LOPERAMIDE
     Dosage: 2 MG, PRN
  7. LINEZOLID. [Concomitant]
     Active Substance: LINEZOLID
     Indication: CELLULITIS
     Dosage: UNK
  8. CARBOCISTEINE [Concomitant]
     Active Substance: CARBOCYSTEINE
     Dosage: 2250 MG, QD

REACTIONS (5)
  - Acute kidney injury [Recovered/Resolved]
  - Rash macular [Recovered/Resolved]
  - Product use in unapproved indication [Unknown]
  - Prescribed overdose [Unknown]
  - Product use issue [Unknown]

NARRATIVE: CASE EVENT DATE: 20180103
